FAERS Safety Report 11049001 (Version 1)
Quarter: 2015Q2

REPORT INFORMATION
  Report Type: Spontaneous
  Country: US (occurrence: US)
  Receive Date: 20150420
  Receipt Date: 20150420
  Transmission Date: 20150821
  Serious: Yes (Hospitalization, Other)
  Sender: FDA-Public Use
  Company Number: US-BAYER-2015-135277

PATIENT
  Age: 58 Year
  Sex: Male
  Weight: 86.2 kg

DRUGS (6)
  1. SIMVASTATIN. [Concomitant]
     Active Substance: SIMVASTATIN
  2. BETASERON [Suspect]
     Active Substance: INTERFERON BETA-1B
     Indication: MULTIPLE SCLEROSIS
     Dosage: UNK
  3. METOPROLOL [Concomitant]
     Active Substance: METOPROLOL
  4. BACLOFEN. [Concomitant]
     Active Substance: BACLOFEN
  5. AMPYRA [Suspect]
     Active Substance: DALFAMPRIDINE
     Indication: MULTIPLE SCLEROSIS
     Dosage: 10 MG, BID
     Route: 048
     Dates: start: 201004, end: 201005
  6. ASPIRIN. [Concomitant]
     Active Substance: ASPIRIN

REACTIONS (11)
  - Cardiac flutter [None]
  - Multiple sclerosis relapse [None]
  - Endocarditis [None]
  - Loss of control of legs [None]
  - Fall [None]
  - Multiple sclerosis relapse [None]
  - Urinary tract infection [None]
  - Central nervous system lesion [None]
  - Anti-interferon antibody positive [None]
  - Influenza [None]
  - Drug ineffective [None]

NARRATIVE: CASE EVENT DATE: 20100507
